FAERS Safety Report 25872488 (Version 1)
Quarter: 2025Q4

REPORT INFORMATION
  Report Type: Spontaneous
  Country: US (occurrence: US)
  Receive Date: 20251002
  Receipt Date: 20251002
  Transmission Date: 20260118
  Serious: No
  Sender: ELI LILLY AND COMPANY
  Company Number: US-ELI_LILLY_AND_COMPANY-US202509017284

PATIENT
  Age: 73 Year
  Sex: Female

DRUGS (1)
  1. MOUNJARO [Suspect]
     Active Substance: TIRZEPATIDE
     Indication: Product used for unknown indication
     Dosage: UNK, UNKNOWN
     Route: 065

REACTIONS (10)
  - Gastrointestinal disorder [Unknown]
  - Irritable bowel syndrome [Unknown]
  - Arthropathy [Unknown]
  - Back disorder [Unknown]
  - Cataract [Unknown]
  - Road traffic accident [Unknown]
  - Joint dislocation [Unknown]
  - Fall [Unknown]
  - Arthralgia [Unknown]
  - Fatigue [Unknown]
